FAERS Safety Report 4454513-7 (Version None)
Quarter: 2004Q3

REPORT INFORMATION
  Report Type: 
  Country: None (occurrence: None)
  Receive Date: 20040917
  Receipt Date: 20040917
  Transmission Date: 20050211
  Serious: No
  Sender: FDA-Public Use
  Company Number: None

PATIENT
  Age: 61 Year
  Sex: Male

DRUGS (2)
  1. GATIFLOXACIN [Suspect]
     Indication: PROPHYLAXIS
     Dosage: 400 MG Q24H INTRAVENOUS
     Route: 042
     Dates: start: 20040806, end: 20040809
  2. GATIFLOXACIN [Suspect]
     Indication: SMALL INTESTINAL PERFORATION
     Dosage: 400 MG Q24H INTRAVENOUS
     Route: 042
     Dates: start: 20040806, end: 20040809

REACTIONS (1)
  - HYPOGLYCAEMIA [None]
